FAERS Safety Report 18337124 (Version 2)
Quarter: 2020Q4

REPORT INFORMATION
  Report Type: Other
  Country: RU (occurrence: RU)
  Receive Date: 20201001
  Receipt Date: 20201116
  Transmission Date: 20210113
  Serious: Yes (Other)
  Sender: FDA-Public Use
  Company Number: RU-ROCHE-2687325

PATIENT
  Age: 7 Year
  Sex: Male

DRUGS (21)
  1. TAVEGIL [Concomitant]
     Active Substance: CLEMASTINE FUMARATE
     Indication: DERMATITIS ALLERGIC
  2. TRIMETHOPRIM. [Concomitant]
     Active Substance: TRIMETHOPRIM
  3. PYRIDOXINE [Concomitant]
     Active Substance: PYRIDOXINE
  4. GLYCINE. [Concomitant]
     Active Substance: GLYCINE
  5. ENTRECTINIB [Suspect]
     Active Substance: ENTRECTINIB
     Dosage: RESUMED WITH A DOSE REDUCTION OF 25% 400 MG/DAY
     Route: 048
     Dates: start: 20200928
  6. CIPROFLOXACIN. [Concomitant]
     Active Substance: CIPROFLOXACIN
  7. SUPRAX [Concomitant]
     Active Substance: CEFIXIME
  8. IMATINIB. [Concomitant]
     Active Substance: IMATINIB MESYLATE
     Dates: start: 20200424, end: 20200529
  9. METHOTREXATE. [Concomitant]
     Active Substance: METHOTREXATE
     Dosage: RECEIVED NEXT DOSE ON 10/JUN/2020, 17/JUN/2020 - THIRD INTRODUCTION, 24/06/2020 - FOURTH?INTRODUCTIO
     Dates: start: 20200603
  10. ZIRTEC [Concomitant]
     Active Substance: CETIRIZINE HYDROCHLORIDE
     Indication: DERMATITIS ALLERGIC
  11. METOTREXATE [Concomitant]
     Active Substance: METHOTREXATE SODIUM
     Dates: start: 20200603
  12. FURADONIN [Concomitant]
     Indication: CYSTITIS
  13. CREON [Concomitant]
     Active Substance: PANCRELIPASE AMYLASE\PANCRELIPASE LIPASE\PANCRELIPASE PROTEASE
  14. ONDANSETRON [Concomitant]
     Active Substance: ONDANSETRON
  15. ENTRECTINIB [Suspect]
     Active Substance: ENTRECTINIB
     Indication: NEOPLASM
     Dosage: 1R
     Route: 048
     Dates: start: 20200826, end: 20200925
  16. VINBLASTINE [Concomitant]
     Active Substance: VINBLASTINE
     Dosage: RECEIVED NEXT DOSE ON 10/JUN/2020, 17/JUN/2020 - THIRD INTRODUCTION, 24/06/2020 - FOURTH?INTRODUCTIO
     Dates: start: 20200603
  17. BISEPTOL [Concomitant]
     Active Substance: SULFAMETHOXAZOLE\TRIMETHOPRIM
  18. MIRAMISTIN [Concomitant]
     Active Substance: MIRAMISTIN
  19. BISEPTOL [Concomitant]
     Active Substance: SULFAMETHOXAZOLE\TRIMETHOPRIM
  20. URSOFALK [Concomitant]
     Active Substance: URSODIOL
  21. VERMOX [Concomitant]
     Active Substance: MEBENDAZOLE
     Dates: start: 20200620

REACTIONS (4)
  - Haematotoxicity [Unknown]
  - Nausea [Recovered/Resolved]
  - Vomiting [Recovered/Resolved]
  - Neutrophil count decreased [Unknown]

NARRATIVE: CASE EVENT DATE: 20200918
